FAERS Safety Report 6435618-8 (Version None)
Quarter: 2009Q4

REPORT INFORMATION
  Report Type: 
  Country: None (occurrence: None)
  Receive Date: 20091110
  Receipt Date: 20080311
  Transmission Date: 20100525
  Serious: No
  Sender: FDA-Public Use
  Company Number: AEDEU200800061

PATIENT
  Age: 39 Year
  Sex: Female
  Weight: 70 kg

DRUGS (3)
  1. GAMUNEX [Suspect]
     Indication: MULTIPLE SCLEROSIS
     Dosage: 200 ML; QM; IV
     Route: 042
     Dates: start: 20040205, end: 20080117
  2. INTERFERON [Concomitant]
  3. COPAXONE [Concomitant]

REACTIONS (5)
  - BLISTER [None]
  - ERYTHEMA [None]
  - HYPERSENSITIVITY [None]
  - PRURITUS [None]
  - URTICARIA [None]
